FAERS Safety Report 11763373 (Version 1)
Quarter: 2015Q4

REPORT INFORMATION
  Report Type: Spontaneous
  Country: US (occurrence: US)
  Receive Date: 20151120
  Receipt Date: 20151120
  Transmission Date: 20160304
  Serious: No
  Sender: FDA-Public Use
  Company Number: US-ELI_LILLY_AND_COMPANY-US201303007163

PATIENT
  Sex: Female

DRUGS (4)
  1. LEVOXYL [Concomitant]
     Active Substance: LEVOTHYROXINE SODIUM
     Indication: THYROID DISORDER
     Dosage: 100 UG, UNK
  2. PREMARIN [Concomitant]
     Active Substance: ESTROGENS, CONJUGATED
  3. CITRACAL [Concomitant]
     Active Substance: CALCIUM CITRATE
     Indication: MINERAL SUPPLEMENTATION
  4. FORTEO [Suspect]
     Active Substance: TERIPARATIDE
     Dosage: UNK
     Dates: start: 20130125, end: 20130225

REACTIONS (3)
  - Pruritus [Unknown]
  - Rash [Unknown]
  - Discomfort [Unknown]
